FAERS Safety Report 23467602 (Version 1)
Quarter: 2024Q1

REPORT INFORMATION
  Report Type: Spontaneous
  Country: US (occurrence: US)
  Receive Date: 20240201
  Receipt Date: 20240201
  Transmission Date: 20240410
  Serious: Yes (Other)
  Sender: FDA-Public Use
  Company Number: US-FreseniusKabi-FK202401440

PATIENT
  Age: 67 Year
  Sex: Male

DRUGS (9)
  1. HEPARIN SODIUM [Suspect]
     Active Substance: HEPARIN SODIUM
     Indication: Anticoagulant therapy
     Dosage: 40000 UNITS GIVEN PRE CPB AT 0908
     Dates: start: 20240113
  2. HEPARIN SODIUM [Suspect]
     Active Substance: HEPARIN SODIUM
     Dosage: 10000 UNITS AT 0916
     Dates: start: 20240113
  3. HEPARIN SODIUM [Suspect]
     Active Substance: HEPARIN SODIUM
     Dosage: ADDITIONAL 10000 AT 1003
     Dates: start: 20240113
  4. HEPARIN SODIUM [Suspect]
     Active Substance: HEPARIN SODIUM
     Dosage: ADDITIONAL 10000 UNITS IN CPB PRIME AT T 0950
     Dates: start: 20240113
  5. HEPARIN SODIUM [Suspect]
     Active Substance: HEPARIN SODIUM
     Dosage: ADDITIONAL 10000 UNITS AT 0951
     Dates: start: 20240113
  6. HEPARIN SODIUM [Suspect]
     Active Substance: HEPARIN SODIUM
     Dosage: 10000 UNITS AT 1037
     Dates: start: 20240113
  7. PROTAMINE [Suspect]
     Active Substance: PROTAMINE
     Indication: Product used for unknown indication
     Dates: start: 20240113
  8. ANTITHROMBIN III HUMAN [Concomitant]
     Active Substance: ANTITHROMBIN III HUMAN
     Indication: Product used for unknown indication
     Dosage: 500 UNITS AT 1019
     Dates: start: 20240113
  9. ANTITHROMBIN III HUMAN [Concomitant]
     Active Substance: ANTITHROMBIN III HUMAN
     Dosage: 500 UNITS AT 1044
     Dates: start: 20240113

REACTIONS (3)
  - Post procedural haemorrhage [Unknown]
  - Procedural haemorrhage [Unknown]
  - Drug ineffective [Unknown]

NARRATIVE: CASE EVENT DATE: 20240113
